FAERS Safety Report 13734545 (Version 2)
Quarter: 2018Q1

REPORT INFORMATION
  Report Type: Report from Study
  Country: BR (occurrence: BR)
  Receive Date: 20170709
  Receipt Date: 20180219
  Transmission Date: 20180508
  Serious: Yes (Other)
  Sender: FDA-Public Use
  Company Number: PHHY2015BR168471

PATIENT
  Age: 32 Year
  Sex: Female
  Weight: 59 kg

DRUGS (9)
  1. EXJADE [Suspect]
     Active Substance: DEFERASIROX
     Dosage: 500 MG, QOD (EVERY OTHER DAY)
     Route: 048
  2. SIMVASTATIN. [Concomitant]
     Active Substance: SIMVASTATIN
     Indication: BLOOD CHOLESTEROL INCREASED
     Dosage: 1 DF, QHS (AT NIGHT)
     Route: 048
     Dates: start: 2010
  3. ACIDO FOLICO//FOLIC ACID [Concomitant]
     Active Substance: FOLIC ACID
     Indication: SICKLE CELL ANAEMIA
     Dosage: 1 DF, QD
     Route: 048
  4. ENALAPRIL [Concomitant]
     Active Substance: ENALAPRIL
     Indication: HYPERTENSION
     Dosage: 2 DF, QD
     Route: 048
     Dates: start: 2010
  5. A S A [Concomitant]
     Indication: PRODUCT USED FOR UNKNOWN INDICATION
     Dosage: 1 DF, QD
     Route: 048
     Dates: start: 2010
  6. EXJADE [Suspect]
     Active Substance: DEFERASIROX
     Dosage: 500 MG, QMO
     Route: 048
  7. OMEPRAZOL ^ACYFABRIK^ [Concomitant]
     Indication: PRODUCT USED FOR UNKNOWN INDICATION
     Dosage: 1 DF, QD
     Route: 048
     Dates: start: 2010
  8. EXJADE [Suspect]
     Active Substance: DEFERASIROX
     Indication: SICKLE CELL ANAEMIA
     Dosage: 500 MG (10 MG/KG), QD
     Route: 048
     Dates: start: 2014, end: 201503
  9. EXJADE [Suspect]
     Active Substance: DEFERASIROX
     Dosage: 10 MG/KG, QHS (500 MG DAILY AT NIGHT)
     Route: 048
     Dates: start: 201510

REACTIONS (8)
  - Dysentery [Unknown]
  - Weight decreased [Unknown]
  - Vomiting [Unknown]
  - Retching [Recovering/Resolving]
  - Deafness [Unknown]
  - Renal disorder [Recovered/Resolved]
  - Diarrhoea [Unknown]
  - Incorrect drug administration duration [Unknown]

NARRATIVE: CASE EVENT DATE: 201510
